FAERS Safety Report 19257053 (Version 1)
Quarter: 2021Q2

REPORT INFORMATION
  Report Type: Spontaneous
  Country: US (occurrence: US)
  Receive Date: 20210513
  Receipt Date: 20210513
  Transmission Date: 20210717
  Serious: Yes (Other)
  Sender: FDA-Public Use
  Company Number: US-SAGENT PHARMACEUTICALS-2021SAG000965

PATIENT

DRUGS (3)
  1. LEUCOVORIN CALCIUM. [Suspect]
     Active Substance: LEUCOVORIN CALCIUM
     Indication: PRODUCT USED FOR UNKNOWN INDICATION
     Dosage: UNK
  2. PYRIMETHAMINE [Suspect]
     Active Substance: PYRIMETHAMINE
     Indication: TOXOPLASMOSIS
     Dosage: UNK
  3. SULFADIAZINE. [Suspect]
     Active Substance: SULFADIAZINE
     Indication: TOXOPLASMOSIS
     Dosage: UNK

REACTIONS (1)
  - Crystalluria [Unknown]
